FAERS Safety Report 21419324 (Version 3)
Quarter: 2022Q4

REPORT INFORMATION
  Report Type: Spontaneous
  Country: US (occurrence: US)
  Receive Date: 20221006
  Receipt Date: 20221024
  Transmission Date: 20230113
  Serious: No
  Sender: FDA-Public Use
  Company Number: US-PFIZER INC-2021290588

PATIENT
  Age: 55 Year
  Sex: Male

DRUGS (5)
  1. INLYTA [Suspect]
     Active Substance: AXITINIB
     Indication: Renal cancer
     Dosage: 1 MG
  2. INLYTA [Suspect]
     Active Substance: AXITINIB
     Indication: Renal cancer metastatic
     Dosage: 6 MG, 2X/DAY (INLYTA 6MG. 30-DAY SUPPLY)
     Route: 048
  3. INLYTA [Suspect]
     Active Substance: AXITINIB
     Dosage: 7 MG, 2X/DAY(TAKE WITH 1MG TABS TOTAL OF 7MG TWICE A DAY)
     Route: 048
  4. INLYTA [Suspect]
     Active Substance: AXITINIB
     Dosage: 7 MG, 1X/DAY (1MG TABLET 2 TAB ORALLY ONCE A DAY AND 5 MG TABLET 1 TAB ORALLY ONCE A DAY)
     Route: 048
  5. INLYTA [Suspect]
     Active Substance: AXITINIB
     Dosage: 60 MG, 2X/DAY
     Route: 048

REACTIONS (2)
  - Product dose omission issue [Unknown]
  - Product prescribing error [Unknown]
